FAERS Safety Report 14646676 (Version 3)
Quarter: 2018Q4

REPORT INFORMATION
  Report Type: Spontaneous
  Country: IT (occurrence: IT)
  Receive Date: 20180316
  Receipt Date: 20181012
  Transmission Date: 20190204
  Serious: Yes (Other)
  Sender: FDA-Public Use
  Company Number: PHHY2018IT041129

PATIENT
  Age: 18 Year
  Sex: Male

DRUGS (18)
  1. CARBOPLATIN. [Suspect]
     Active Substance: CARBOPLATIN
     Indication: PRIMARY MEDIASTINAL LARGE B-CELL LYMPHOMA
     Route: 065
  2. ETOPOSIDE. [Suspect]
     Active Substance: ETOPOSIDE
     Indication: PRIMARY MEDIASTINAL LARGE B-CELL LYMPHOMA
     Dosage: 100 MG/M2 (FOR 2 HOURS ON DAY 4 AND 5 (2 COURSES OF COURSE AA AND 2 COURSES OF COURSE CC)
     Route: 042
  3. METHOTREXATE. [Suspect]
     Active Substance: METHOTREXATE
     Dosage: METHOTREXATE, CYTARABINE AND PREDNISOLONE (12MG+30MG+10MG) ON DAY 1: IN PREPHASE THERAPY, 2 COURSES
     Route: 037
  4. PREDNISOLONE. [Suspect]
     Active Substance: PREDNISOLONE
     Indication: PRIMARY MEDIASTINAL LARGE B-CELL LYMPHOMA
     Dosage: PRIMARY MEDIASTINAL LARGE B-CELL LYMPHOMA
     Route: 037
  5. CYCLOPHOSPHAMIDE. [Suspect]
     Active Substance: CYCLOPHOSPHAMIDE
     Indication: PRIMARY MEDIASTINAL LARGE B-CELL LYMPHOMA
     Dosage: 200 MG/M2, QD (FOR 1 HOUR ON DAY 1 TO 5: 3 COURSES OF COURSE BB)
     Route: 042
  6. VINDESINE [Suspect]
     Active Substance: VINDESINE
     Indication: PRIMARY MEDIASTINAL LARGE B-CELL LYMPHOMA
     Dosage: 3 MG/M2, ON DAY 1 (2 COURSES OF COURSE CC)
     Route: 042
  7. IFOSFAMIDE. [Suspect]
     Active Substance: IFOSFAMIDE
     Indication: PRIMARY MEDIASTINAL LARGE B-CELL LYMPHOMA
     Dosage: 800 MG/M2 (FOR 1 HOUR ON DAY 1 TO 5: COURSE AA (2 COURSES)
     Route: 042
  8. CYCLOPHOSPHAMIDE. [Suspect]
     Active Substance: CYCLOPHOSPHAMIDE
     Dosage: 200 MG/M2, FOR 1 HOUR ON DAY 1 AND 2: IN PREPHASE THERAPY
     Route: 042
  9. METHOTREXATE. [Suspect]
     Active Substance: METHOTREXATE
     Indication: PRIMARY MEDIASTINAL LARGE B-CELL LYMPHOMA
     Dosage: 3 G/M2, (10 % OF DOSE GIVEN IN 0.5 HOURS, 90% OF DOSE OVER 23.5 HOURS) ON DAY 1 (2COURSE)
     Route: 042
  10. DEXAMETHASONE. [Suspect]
     Active Substance: DEXAMETHASONE
     Indication: PRIMARY MEDIASTINAL LARGE B-CELL LYMPHOMA
     Dosage: 20 MG/M2 (IN 2 COURSES OF COURSE CC ON DAY 0 TO 5)
     Route: 065
  11. CYTARABINE. [Suspect]
     Active Substance: CYTARABINE
     Dosage: METHOTREXATE, CYTARABINE AND PREDNISOLONE (12MG+30MG+10MG) ON DAY 1: IN PREPHASE THERAPY, 2 COURSE)
     Route: 037
  12. CYTARABINE. [Suspect]
     Active Substance: CYTARABINE
     Dosage: 3 G/M2, IN TWO DOSES (DOSES ARE 12 HOURS APART) FOR 3 HOURS ON DAY 1 AND 2:2 COURSES OF COURSE
     Route: 042
  13. VINCRISTINE [Suspect]
     Active Substance: VINCRISTINE
     Indication: PRIMARY MEDIASTINAL LARGE B-CELL LYMPHOMA
     Dosage: 1.5 MG/M2 ON DAY 1 (2 COURSES OF COURSE AA AND 3 COURSES OF COURSE BB)
     Route: 042
  14. LEVOLEUCOVORIN. [Suspect]
     Active Substance: LEVOLEUCOVORIN
     Dosage: 7.5 MG/M2 AT 48 AND 54 HOURS AFTER METHOTREXATE ADMINISTRATION.
     Route: 042
  15. CYTARABINE. [Suspect]
     Active Substance: CYTARABINE
     Indication: PRIMARY MEDIASTINAL LARGE B-CELL LYMPHOMA
     Dosage: 150 MG/M2 (IN TWO DOSES (DOSES ARE 12 HOURS APART) FOR 1 HOUR ON DAY 4 AND 5:2 COURSES OF COURSE AA)
     Route: 042
  16. DOXORUBICIN [Suspect]
     Active Substance: DOXORUBICIN
     Indication: PRIMARY MEDIASTINAL LARGE B-CELL LYMPHOMA
     Dosage: 30 MG/M2, QD (FOR 4 HOURS ON DAY 4 AND 5 (3 COURSES OF COURSE BB)
     Route: 042
  17. RITUXIMAB. [Suspect]
     Active Substance: RITUXIMAB
     Indication: PRIMARY MEDIASTINAL LARGE B-CELL LYMPHOMA
     Dosage: 375 MG/M2 (ON DAY 0: 2 COURSES OF COURSE AA, 3 COURSES OF COURSE BB AND 2 COURSES OF COURSE CC)
     Route: 065
  18. LEVOLEUCOVORIN. [Suspect]
     Active Substance: LEVOLEUCOVORIN
     Indication: PRIMARY MEDIASTINAL LARGE B-CELL LYMPHOMA
     Dosage: RECEIVED 15 MG/M2 AT 42 HOURS AFTER METHOTREXATE
     Route: 042

REACTIONS (2)
  - Dyspnoea [Unknown]
  - Restrictive pulmonary disease [Unknown]
